FAERS Safety Report 18195595 (Version 1)
Quarter: 2020Q3

REPORT INFORMATION
  Report Type: Spontaneous
  Country: JP (occurrence: JP)
  Receive Date: 20200825
  Receipt Date: 20200825
  Transmission Date: 20201103
  Serious: Yes (Other)
  Sender: FDA-Public Use
  Company Number: JP-NANJING KING-FRIEND BIOCHEMICAL PHARMACEUTICAL CO. LTD.-2020NKF00033

PATIENT
  Age: 72 Year
  Sex: Female

DRUGS (2)
  1. GEMCITABINE. [Suspect]
     Active Substance: GEMCITABINE
     Indication: PANCREATIC CARCINOMA
     Dosage: 800 MG/M2 ON DAYS 1,8, AND 15 OF A 4?WEEK CYCLE
     Route: 065
  2. GEMCITABINE. [Suspect]
     Active Substance: GEMCITABINE
     Dosage: 1000 MG/M2 ON DAYS 1,8, AND 15 OF A 4?WEEK CYCLE
     Route: 065

REACTIONS (2)
  - Gastroenteritis radiation [Recovering/Resolving]
  - Gastric ulcer [Recovering/Resolving]
